FAERS Safety Report 4465070-3 (Version None)
Quarter: 2004Q3

REPORT INFORMATION
  Report Type: 
  Country: None (occurrence: None)
  Receive Date: 20040929
  Receipt Date: 20040914
  Transmission Date: 20050211
  Serious: Yes (Other)
  Sender: FDA-Public Use
  Company Number: USA040978187

PATIENT
  Age: 76 Year
  Sex: Male

DRUGS (1)
  1. GEMZAR [Suspect]
     Indication: LUNG NEOPLASM MALIGNANT
     Dates: start: 20031201, end: 20031222

REACTIONS (4)
  - BREAST OEDEMA [None]
  - INFECTION [None]
  - INFUSION SITE BURNING [None]
  - RADIATION INJURY [None]
